FAERS Safety Report 8334428-4 (Version None)
Quarter: 2012Q2

REPORT INFORMATION
  Report Type: 
  Country: None (occurrence: None)
  Receive Date: 20120503
  Receipt Date: 20110919
  Transmission Date: 20120825
  Serious: No
  Sender: FDA-Public Use
  Company Number: US-BAUSCH-2011BL006325

PATIENT
  Age: 60 Year
  Sex: Female

DRUGS (2)
  1. LOTEMAX [Suspect]
     Indication: EYELID INJURY
     Route: 047
     Dates: start: 20110916, end: 20110916
  2. MARAX [Concomitant]
     Indication: HYPERSENSITIVITY

REACTIONS (1)
  - DRUG HYPERSENSITIVITY [None]
